FAERS Safety Report 23236393 (Version 1)
Quarter: 2023Q4

REPORT INFORMATION
  Report Type: Report from Study
  Country: US (occurrence: US)
  Receive Date: 20231128
  Receipt Date: 20231128
  Transmission Date: 20240110
  Serious: No
  Sender: FDA-Public Use
  Company Number: US-002147023-NVSC2023US252337

PATIENT
  Sex: Female

DRUGS (2)
  1. ENTRESTO [Suspect]
     Active Substance: SACUBITRIL\VALSARTAN
     Indication: Ejection fraction
     Dosage: 24.26 MG, BID
     Route: 048
     Dates: start: 20230803
  2. ENTRESTO [Suspect]
     Active Substance: SACUBITRIL\VALSARTAN
     Dosage: 49.51 MG, BID
     Route: 048
     Dates: start: 20230803

REACTIONS (4)
  - Hypotension [Unknown]
  - Flatulence [Unknown]
  - Asthenia [Unknown]
  - Vomiting [Unknown]
